FAERS Safety Report 19332433 (Version 1)
Quarter: 2021Q2

REPORT INFORMATION
  Report Type: Spontaneous
  Country: NL (occurrence: NL)
  Receive Date: 20210529
  Receipt Date: 20210529
  Transmission Date: 20210717
  Serious: Yes (Death, Hospitalization, Other)
  Sender: FDA-Public Use
  Company Number: NL-AUROBINDO-AUR-APL-2021-022432

PATIENT
  Age: 53 Year
  Sex: Male

DRUGS (1)
  1. VALPROATE SODIUM. [Suspect]
     Active Substance: VALPROATE SODIUM
     Indication: EPILEPSY
     Dosage: 600 MILLIGRAM, FOUR TIMES/DAY
     Route: 065

REACTIONS (14)
  - Hyponatraemia [Fatal]
  - Respiratory distress [Fatal]
  - Weight decreased [Fatal]
  - Hypoalbuminaemia [Fatal]
  - Vomiting [Fatal]
  - Anaemia [Fatal]
  - Haemorrhagic diathesis [Fatal]
  - Toxicity to various agents [Fatal]
  - Multiple organ dysfunction syndrome [Fatal]
  - Hypocalcaemia [Fatal]
  - Acute on chronic liver failure [Fatal]
  - Hypokalaemia [Fatal]
  - Depressed level of consciousness [Fatal]
  - Hyperglycaemia [Fatal]
